FAERS Safety Report 10336089 (Version 1)
Quarter: 2014Q3

REPORT INFORMATION
  Report Type: Spontaneous
  Country: US (occurrence: US)
  Receive Date: 20140723
  Receipt Date: 20140723
  Transmission Date: 20150326
  Serious: No
  Sender: FDA-Public Use
  Company Number: US-BRISTOL-MYERS SQUIBB COMPANY-19704329

PATIENT
  Age: 77 Year
  Sex: Male

DRUGS (1)
  1. WARFARIN SODIUM. [Suspect]
     Active Substance: WARFARIN SODIUM
     Indication: CORONARY ARTERY BYPASS
     Dosage: 2/1 MG TABS ON SAT,SUN,TUE,THU.1/1MG ON MON,WED,FRI.
     Dates: start: 201306

REACTIONS (1)
  - Adverse event [Unknown]
